FAERS Safety Report 22102551 (Version 6)
Quarter: 2024Q3

REPORT INFORMATION
  Report Type: Report from Study
  Country: FR (occurrence: FR)
  Receive Date: 20230316
  Receipt Date: 20240926
  Transmission Date: 20241017
  Serious: Yes (Hospitalization, Other)
  Sender: NOVARTIS
  Company Number: FR-002147023-NVSC2023FR058029

PATIENT
  Age: 75 Year
  Sex: Female
  Weight: 45 kg

DRUGS (7)
  1. LUTATHERA [Suspect]
     Active Substance: LUTETIUM OXODOTREOTIDE LU-177
     Indication: Neuroendocrine tumour of the lung metastatic
     Dosage: 5.79 GBQ, ONCE (CYCLE ONE)
     Route: 042
     Dates: start: 20230214, end: 20230214
  2. LUTATHERA [Suspect]
     Active Substance: LUTETIUM OXODOTREOTIDE LU-177
     Indication: Neuroendocrine tumour of the lung
  3. LUTATHERA [Suspect]
     Active Substance: LUTETIUM OXODOTREOTIDE LU-177
     Indication: Pulmonary hilum mass
  4. LUTATHERA [Suspect]
     Active Substance: LUTETIUM OXODOTREOTIDE LU-177
     Indication: Mediastinal mass
  5. SOLUPRED [Concomitant]
     Indication: Tumour inflammation
     Dosage: 40 MG (1 MG/KG)
     Route: 065
     Dates: start: 20230213, end: 20230217
  6. SOLUPRED [Concomitant]
     Indication: Pulmonary artery compression
  7. SANDOSTATIN [Concomitant]
     Active Substance: OCTREOTIDE ACETATE
     Indication: Carcinoid crisis
     Dosage: UNK
     Route: 065
     Dates: start: 20230214

REACTIONS (8)
  - Bronchospasm [Recovered/Resolved]
  - Oxygen saturation decreased [Recovered/Resolved]
  - Dyspnoea [Recovered/Resolved]
  - Dysphonia [Recovered/Resolved]
  - Hypotension [Recovered/Resolved]
  - Thrombocytopenia [Unknown]
  - Neuroendocrine tumour of the lung metastatic [Unknown]
  - Neoplasm recurrence [Unknown]

NARRATIVE: CASE EVENT DATE: 20230214
